FAERS Safety Report 13720284 (Version 1)
Quarter: 2017Q3

REPORT INFORMATION
  Report Type: Spontaneous
  Country: US (occurrence: US)
  Receive Date: 20170706
  Receipt Date: 20170706
  Transmission Date: 20171127
  Serious: No
  Sender: FDA-Public Use
  Company Number: US-GLENMARK PHARMACEUTICALS-2017GMK027224

PATIENT

DRUGS (1)
  1. EZETIMIBE. [Suspect]
     Active Substance: EZETIMIBE
     Indication: HYPERLIPIDAEMIA
     Dosage: UNK
     Route: 065
     Dates: start: 20170324, end: 20170327

REACTIONS (3)
  - Vomiting [Recovered/Resolved]
  - Eructation [Recovered/Resolved]
  - Gastrooesophageal reflux disease [Recovered/Resolved]

NARRATIVE: CASE EVENT DATE: 20170324
